FAERS Safety Report 9197164 (Version 1)
Quarter: 2013Q1

REPORT INFORMATION
  Report Type: Spontaneous
  Country: US (occurrence: None)
  Receive Date: 20120709
  Receipt Date: 20120709
  Transmission Date: 20140127
  Serious: Yes (Other)
  Sender: FDA-Public Use
  Company Number: PHEH2011US04976

PATIENT
  Age: 66 Year
  Sex: Male
  Weight: 95 kg

DRUGS (13)
  1. GLEEVEC [Concomitant]
     Route: 048
     Dates: start: 20110901
  2. PLAVIX (CLOPIDOGREL SULFATE) [Concomitant]
  3. LISTINOPRIL (LISINOPRIL) [Concomitant]
  4. NIFEDIPIN (NIFEDIPINE) [Concomitant]
  5. NITROSTAT (GLYCERYL TRINITRATE) [Concomitant]
  6. ASA (ACETYLSALICYLCI ACID) [Concomitant]
  7. CELEXA (CITALOPRAM HYDROBROMIDE) [Concomitant]
  8. GLUCOPHAGE (METFORMIN) [Concomitant]
  9. LEVOTHYROXINE (LEVOTHROXINE) [Concomitant]
  10. NOVOLOG (INSULIN ASPART) [Concomitant]
  11. METOPROLOL TARTRATE (METOPROLOL TARTRATE) [Concomitant]
  12. PERCOCET (OXYCODONE HYDROCHLORIDE, PARARCETAMOL) [Concomitant]
  13. NIACIN (NICOTINIC ACID) [Concomitant]

REACTIONS (5)
  - Depression [None]
  - Pain [None]
  - Paranoia [None]
  - Anxiety [None]
  - Diarrhoea [None]
